FAERS Safety Report 6829474-3 (Version None)
Quarter: 2010Q3

REPORT INFORMATION
  Report Type: 
  Country: None (occurrence: None)
  Receive Date: 20100709
  Receipt Date: 20070312
  Transmission Date: 20110219
  Serious: No
  Sender: FDA-Public Use
  Company Number: US-PFIZER INC-2007019956

PATIENT
  Sex: Female
  Weight: 77.11 kg

DRUGS (5)
  1. CHANTIX [Suspect]
     Indication: SMOKING CESSATION THERAPY
     Route: 048
     Dates: start: 20070101
  2. SEROQUEL [Concomitant]
     Route: 048
  3. GEODON [Concomitant]
     Route: 048
  4. ANTACID TAB [Concomitant]
     Indication: GASTROINTESTINAL DISORDER
     Route: 048
  5. DEPAKOTE [Concomitant]

REACTIONS (1)
  - NAUSEA [None]
